FAERS Safety Report 16238924 (Version 1)
Quarter: 2019Q2

REPORT INFORMATION
  Report Type: Spontaneous
  Country: US (occurrence: US)
  Receive Date: 20190425
  Receipt Date: 20190425
  Transmission Date: 20190711
  Serious: Yes (Other)
  Sender: FDA-Public Use
  Company Number: US-BAYER-2019-081961

PATIENT
  Age: 46 Year
  Sex: Male

DRUGS (1)
  1. BETASERON [Suspect]
     Active Substance: INTERFERON BETA-1B
     Indication: MULTIPLE SCLEROSIS
     Dosage: 0.25 MG
     Route: 058
     Dates: end: 201904

REACTIONS (4)
  - Multiple sclerosis [Not Recovered/Not Resolved]
  - Drug ineffective [Not Recovered/Not Resolved]
  - Depression [Not Recovered/Not Resolved]
  - Suicidal ideation [Not Recovered/Not Resolved]
